FAERS Safety Report 19686805 (Version 1)
Quarter: 2021Q3

REPORT INFORMATION
  Report Type: Spontaneous
  Country: US (occurrence: US)
  Receive Date: 20210811
  Receipt Date: 20210811
  Transmission Date: 20211014
  Serious: No
  Sender: FDA-Public Use
  Company Number: US-MEDEXUS PHARMA, INC.-2020MED00312

PATIENT
  Age: 68 Year
  Sex: Female
  Weight: 60.32 kg

DRUGS (3)
  1. RASUVO [Suspect]
     Active Substance: METHOTREXATE SODIUM
     Indication: RHEUMATOID ARTHRITIS
     Dosage: 30 MG, 1X/WEEK ON MONDAYS IN ABDOMNEN, NEAR BELLY BUTTON
     Dates: start: 20201005
  2. ^HYDROCHLODINE^ [Concomitant]
  3. FOLIC ACID. [Concomitant]
     Active Substance: FOLIC ACID

REACTIONS (4)
  - Asthenia [Unknown]
  - Accidental exposure to product [Unknown]
  - Burning sensation [Unknown]
  - Device malfunction [Unknown]

NARRATIVE: CASE EVENT DATE: 20201012
